FAERS Safety Report 19821274 (Version 1)
Quarter: 2021Q3

REPORT INFORMATION
  Report Type: Spontaneous
  Country: US (occurrence: US)
  Receive Date: 20210909
  Receipt Date: 20210909
  Transmission Date: 20211014
  Serious: No
  Sender: FDA-Public Use
  Company Number: None

PATIENT
  Sex: Female

DRUGS (1)
  1. SAPROPTERIN DIHY 100MG PAR [Suspect]
     Active Substance: SAPROPTERIN DIHYDROCHLORIDE
     Indication: PHENYLKETONURIA
     Route: 048
     Dates: start: 202012

REACTIONS (3)
  - Gastrooesophageal reflux disease [None]
  - Therapy interrupted [None]
  - Product solubility abnormal [None]
